FAERS Safety Report 21784900 (Version 1)
Quarter: 2022Q4

REPORT INFORMATION
  Report Type: Report from Study
  Country: US (occurrence: US)
  Receive Date: 20221227
  Receipt Date: 20221227
  Transmission Date: 20230112
  Serious: No
  Sender: FDA-Public Use
  Company Number: US-ABBVIE-22K-163-4493302-00

PATIENT
  Sex: Female

DRUGS (2)
  1. RINVOQ [Suspect]
     Active Substance: UPADACITINIB
     Indication: Rheumatoid arthritis
     Dosage: FORM STRENGTH: 15?FORM STRENGTH UNITS: MILLIGRAM
     Route: 048
     Dates: start: 20201117
  2. CYMBALTA [Concomitant]
     Active Substance: DULOXETINE HYDROCHLORIDE
     Indication: Product used for unknown indication
     Dosage: FORM STRENGTH: 20?FORM STRENGTH UNITS: MILLIGRAM
     Route: 048

REACTIONS (4)
  - Loss of personal independence in daily activities [Recovered/Resolved]
  - Nasopharyngitis [Unknown]
  - Pain [Recovered/Resolved]
  - Rheumatoid arthritis [Recovered/Resolved]
